FAERS Safety Report 14221258 (Version 2)
Quarter: 2017Q4

REPORT INFORMATION
  Report Type: Spontaneous
  Country: US (occurrence: US)
  Receive Date: 20171124
  Receipt Date: 20171221
  Transmission Date: 20180321
  Serious: No
  Sender: FDA-Public Use
  Company Number: US-PFIZER INC-2017506092

PATIENT
  Age: 27 Year
  Sex: Female

DRUGS (1)
  1. EUCRISA [Suspect]
     Active Substance: CRISABOROLE
     Indication: DERMATITIS ATOPIC
     Dosage: UNK, 2X/DAY
     Route: 061
     Dates: start: 20171115, end: 20171121

REACTIONS (3)
  - Application site pain [Unknown]
  - Application site pruritus [Unknown]
  - Application site irritation [Recovered/Resolved]

NARRATIVE: CASE EVENT DATE: 201711
